FAERS Safety Report 7274994-3 (Version None)
Quarter: 2011Q1

REPORT INFORMATION
  Report Type: 
  Country: None (occurrence: None)
  Receive Date: 20110203
  Receipt Date: 20110203
  Transmission Date: 20110831
  Serious: Yes (Other)
  Sender: FDA-Public Use
  Company Number: None

PATIENT
  Age: 38 Year
  Sex: Female
  Weight: 72.5755 kg

DRUGS (1)
  1. SUPPLY: ALCOHOL PADS TRIAD (AS RECALLED) [Suspect]
     Indication: HYPOGAMMAGLOBULINAEMIA
     Dosage: TOPICAL PRN VIVAGLOBIN
     Route: 061
     Dates: start: 20070206

REACTIONS (4)
  - APPLICATION SITE RASH [None]
  - APPLICATION SITE ERYTHEMA [None]
  - APPLICATION SITE IRRITATION [None]
  - PRODUCT QUALITY ISSUE [None]
